FAERS Safety Report 15783129 (Version 1)
Quarter: 2019Q1

REPORT INFORMATION
  Report Type: Spontaneous
  Country: IT (occurrence: IT)
  Receive Date: 20190102
  Receipt Date: 20190102
  Transmission Date: 20190417
  Serious: Yes (Other)
  Sender: FDA-Public Use
  Company Number: IT-TEVA-2018-IT-994233

PATIENT
  Age: 72 Year
  Sex: Male

DRUGS (2)
  1. DIAZEPAM. [Suspect]
     Active Substance: DIAZEPAM
     Route: 048
  2. DEPAKIN 500 MG COMPRESSE GASTRORESISTENTI [Suspect]
     Active Substance: VALPROATE SODIUM
     Route: 048

REACTIONS (2)
  - Toxicity to various agents [Unknown]
  - Loss of consciousness [Unknown]

NARRATIVE: CASE EVENT DATE: 20181123
